FAERS Safety Report 5601496-X (Version None)
Quarter: 2008Q1

REPORT INFORMATION
  Report Type: 
  Country: None (occurrence: None)
  Receive Date: 20080124
  Receipt Date: 20070424
  Transmission Date: 20080703
  Serious: No
  Sender: FDA-Public Use
  Company Number: US-BAYER-200710726BCC

PATIENT
  Age: 67 Year
  Sex: Female
  Weight: 88 kg

DRUGS (6)
  1. ALEVE COLD AND SINUS [Suspect]
     Indication: SINUSITIS
     Dosage: UNIT DOSE: 220 MG
     Route: 048
     Dates: start: 20070304
  2. IBUPROFEN [Suspect]
     Indication: SINUSITIS
     Dates: start: 20070304
  3. ACETAMINOPHEN [Suspect]
     Indication: SINUSITIS
     Dates: start: 20070304
  4. PREDNISONE TAB [Suspect]
     Indication: SINUSITIS
     Dates: start: 20070304
  5. NEXIUM [Concomitant]
  6. MULTI-VITAMIN [Concomitant]

REACTIONS (3)
  - CONFUSIONAL STATE [None]
  - DISORIENTATION [None]
  - HOT FLUSH [None]
